FAERS Safety Report 16140913 (Version 1)
Quarter: 2019Q1

REPORT INFORMATION
  Report Type: Spontaneous
  Country: US (occurrence: US)
  Receive Date: 20190226
  Receipt Date: 20190226
  Transmission Date: 20190418
  Serious: Yes (Hospitalization)
  Sender: FDA-Public Use
  Company Number: None

PATIENT
  Age: 51 Year
  Sex: Female

DRUGS (8)
  1. FAMOTIDINE. [Concomitant]
     Active Substance: FAMOTIDINE
  2. LETAIRIS [Suspect]
     Active Substance: AMBRISENTAN
     Indication: PULMONARY ARTERIAL HYPERTENSION
     Route: 048
     Dates: start: 201412
  3. WARFARIN [Concomitant]
     Active Substance: WARFARIN
  4. PANTOPRAZOLE [Concomitant]
     Active Substance: PANTOPRAZOLE
  5. ASTELIN [Concomitant]
     Active Substance: AZELASTINE HYDROCHLORIDE
  6. XALATAN OPHT DROP [Concomitant]
  7. TRIAMCINOLONE ACETONIDE TO OINT [Concomitant]
  8. LASIX [Concomitant]
     Active Substance: FUROSEMIDE

REACTIONS (5)
  - Chills [None]
  - Costochondritis [None]
  - Pleuritic pain [None]
  - Respiratory syncytial virus test positive [None]
  - Acute respiratory failure [None]

NARRATIVE: CASE EVENT DATE: 20190218
